FAERS Safety Report 7156692-X (Version None)
Quarter: 2010Q4

REPORT INFORMATION
  Report Type: 
  Country: None (occurrence: None)
  Receive Date: 20101214
  Receipt Date: 20091130
  Transmission Date: 20110411
  Serious: No
  Sender: FDA-Public Use
  Company Number: US-ASTRAZENECA-2009SE29477

PATIENT
  Sex: Female
  Weight: 55.8 kg

DRUGS (7)
  1. CRESTOR [Suspect]
     Route: 048
     Dates: start: 20090101
  2. BENICAR [Concomitant]
     Route: 048
  3. ASPIRIN [Concomitant]
     Route: 048
  4. FELODIPINE [Concomitant]
     Dosage: TOTAL DAILY DOSE 7.5 MG, BID
     Route: 048
  5. MULTI-VITAMIN [Concomitant]
  6. CALCIUM SUPPLEMENT [Concomitant]
  7. METOPROLOL SUCCINATE [Concomitant]
     Route: 048

REACTIONS (3)
  - FATIGUE [None]
  - ILL-DEFINED DISORDER [None]
  - NAUSEA [None]
